FAERS Safety Report 7089518-3 (Version None)
Quarter: 2010Q4

REPORT INFORMATION
  Report Type: 
  Country: None (occurrence: None)
  Receive Date: 20101108
  Receipt Date: 20101104
  Transmission Date: 20110411
  Serious: Yes (Life-Threatening, Other)
  Sender: FDA-Public Use
  Company Number: JP-PFIZER INC-2010116431

PATIENT
  Age: 77 Year
  Sex: Female
  Weight: 42 kg

DRUGS (16)
  1. SOLU-CORTEF [Suspect]
     Dosage: 300 MG, UNK
     Route: 042
     Dates: start: 20090801
  2. DOPAMINE [Suspect]
     Indication: ADRENOCORTICAL INSUFFICIENCY ACUTE
     Dosage: 4 UG/KG, UNK
     Dates: start: 20090801
  3. DOBUTAMINE [Suspect]
     Indication: ADRENOCORTICAL INSUFFICIENCY ACUTE
     Dosage: 4 UG/KG, UNK
     Dates: start: 20090801
  4. VOGLIBOSE [Concomitant]
     Dosage: UNK
  5. EPALRESTAT [Concomitant]
     Dosage: UNK
  6. MEXILETINE HYDROCHLORIDE [Concomitant]
     Dosage: UNK
  7. BENIDIPINE HYDROCHLORIDE [Concomitant]
     Dosage: UNK
  8. PERINDOPRIL [Concomitant]
     Dosage: UNK
  9. FUROSEMIDE [Concomitant]
     Dosage: UNK
  10. SPIRONOLACTONE [Concomitant]
     Dosage: UNK
  11. ALFACALCIDOL [Concomitant]
     Dosage: UNK
  12. FERROUS CITRATE SODIUM [Concomitant]
     Dosage: UNK
  13. LOXOPROFEN SODIUM [Concomitant]
     Dosage: UNK
  14. BUCILLAMINE [Concomitant]
     Dosage: UNK
  15. DOMPERIDONE [Concomitant]
     Dosage: UNK
  16. ETIZOLAM [Concomitant]
     Dosage: UNK

REACTIONS (3)
  - CONVULSION [None]
  - TORSADE DE POINTES [None]
  - VENTRICULAR TACHYCARDIA [None]
